FAERS Safety Report 15918629 (Version 2)
Quarter: 2019Q2

REPORT INFORMATION
  Report Type: Report from Study
  Country: None (occurrence: CA)
  Receive Date: 20190205
  Receipt Date: 20190514
  Transmission Date: 20190711
  Serious: Yes (Hospitalization)
  Sender: FDA-Public Use
  Company Number: CA-ABBVIE-18K-028-2364263-00

PATIENT
  Age: 25 Year
  Sex: Female

DRUGS (3)
  1. HUMIRA [Suspect]
     Active Substance: ADALIMUMAB
     Route: 058
     Dates: start: 20180504, end: 20180728
  2. HUMIRA [Suspect]
     Active Substance: ADALIMUMAB
     Indication: CROHN^S DISEASE
     Route: 058
     Dates: start: 20180504, end: 20180504
  3. HUMIRA [Suspect]
     Active Substance: ADALIMUMAB
     Route: 058
     Dates: start: 201805, end: 201805

REACTIONS (6)
  - Exposure during pregnancy [Unknown]
  - Injection site erythema [Recovered/Resolved]
  - Fatigue [Recovering/Resolving]
  - Dehydration [Recovered/Resolved]
  - Injection site warmth [Recovered/Resolved]
  - Frequent bowel movements [Recovering/Resolving]

NARRATIVE: CASE EVENT DATE: 201805
